FAERS Safety Report 5063211-0 (Version None)
Quarter: 2006Q3

REPORT INFORMATION
  Report Type: 
  Country: None (occurrence: None)
  Receive Date: 20060703
  Receipt Date: 20060424
  Transmission Date: 20061208
  Serious: No
  Sender: FDA-Public Use
  Company Number: 2006PV012657

PATIENT
  Age: 65 Year
  Sex: Female
  Weight: 72.5755 kg

DRUGS (5)
  1. SYMLIN [Suspect]
     Indication: DIABETES MELLITUS INSULIN-DEPENDENT
     Dosage: SC
     Route: 058
     Dates: start: 20060101, end: 20060101
  2. SYMLIN [Suspect]
     Indication: DIABETES MELLITUS INSULIN-DEPENDENT
     Dosage: SC
     Route: 058
     Dates: start: 20060201, end: 20060101
  3. SYMLIN [Suspect]
     Indication: DIABETES MELLITUS INSULIN-DEPENDENT
     Dosage: SC
     Route: 058
     Dates: start: 20060301, end: 20060410
  4. TOPROL-XL [Concomitant]
  5. SYNTHROID [Concomitant]

REACTIONS (3)
  - ABDOMINAL DISTENSION [None]
  - JOINT SWELLING [None]
  - THERAPEUTIC RESPONSE UNEXPECTED [None]
